FAERS Safety Report 5762849-2 (Version None)
Quarter: 2008Q2

REPORT INFORMATION
  Report Type: 
  Country: None (occurrence: None)
  Receive Date: 20080609
  Receipt Date: 20080509
  Transmission Date: 20081010
  Serious: No
  Sender: FDA-Public Use
  Company Number: US-BAYER-200713418BCC

PATIENT
  Age: 76 Year
  Sex: Female
  Weight: 75 kg

DRUGS (9)
  1. ALEVE [Suspect]
     Indication: BACK PAIN
     Dosage: TOTAL DAILY DOSE: 220 MG  UNIT DOSE: 220 MG
     Route: 048
     Dates: start: 20030201
  2. ASPIRIN [Suspect]
     Indication: CARDIOVASCULAR EVENT PROPHYLAXIS
     Route: 048
     Dates: start: 20030201
  3. DIOVAN [Concomitant]
  4. NORVASC [Concomitant]
  5. CRESTOR [Concomitant]
  6. ZETIA [Concomitant]
  7. VITAMIN WORLD VITAMIN [Concomitant]
  8. CALCIUM PLUS D [Concomitant]
  9. MAGNESIUM [Concomitant]

REACTIONS (2)
  - MUSCULOSKELETAL CHEST PAIN [None]
  - STOMACH DISCOMFORT [None]
